FAERS Safety Report 24915970 (Version 1)
Quarter: 2025Q1

REPORT INFORMATION
  Report Type: Spontaneous
  Country: PT (occurrence: PT)
  Receive Date: 20250203
  Receipt Date: 20250203
  Transmission Date: 20250408
  Serious: Yes (Hospitalization)
  Sender: ACCORD
  Company Number: PT-MLMSERVICE-20250116-PI360655-00050-1

PATIENT
  Age: 79 Year
  Sex: Male

DRUGS (7)
  1. AMLODIPINE [Interacting]
     Active Substance: AMLODIPINE BESYLATE
     Indication: Hypertension
  2. PREDNISOLONE [Interacting]
     Active Substance: PREDNISOLONE
     Indication: Pemphigoid
     Route: 048
  3. CARVEDILOL [Concomitant]
     Active Substance: CARVEDILOL
  4. CANDESARTAN [Concomitant]
     Active Substance: CANDESARTAN
  5. FUROSEMIDE [Concomitant]
     Active Substance: FUROSEMIDE
  6. LINAGLIPTIN [Concomitant]
     Active Substance: LINAGLIPTIN
  7. INSULIN NOS [Concomitant]
     Active Substance: INSULIN NOS
     Indication: Blood glucose increased

REACTIONS (2)
  - Hepatotoxicity [Recovering/Resolving]
  - Drug interaction [Unknown]
